FAERS Safety Report 6655171-3 (Version None)
Quarter: 2010Q1

REPORT INFORMATION
  Report Type: 
  Country: None (occurrence: None)
  Receive Date: 20100329
  Receipt Date: 20100316
  Transmission Date: 20100710
  Serious: Yes (Other)
  Sender: FDA-Public Use
  Company Number: CH-ELI_LILLY_AND_COMPANY-CH201003005741

PATIENT
  Age: 59 Year
  Sex: Female
  Weight: 74.83 kg

DRUGS (6)
  1. EFFIENT [Suspect]
     Indication: PERCUTANEOUS CORONARY INTERVENTION
     Dosage: 60 MG, LOADING DOSE
     Dates: start: 20100302
  2. EFFIENT [Suspect]
     Dosage: 10 MG, MAINTENANCE DOSE
     Dates: start: 20100302
  3. ASPIRIN [Concomitant]
     Indication: CORONARY ARTERY DISEASE
     Dosage: 100 MG, DAILY (1/D)
     Route: 048
     Dates: start: 20100201
  4. RAMIPRIL [Concomitant]
     Indication: HYPERTENSION
     Dosage: 2.5 MG, DAILY (1/D)
     Route: 048
     Dates: start: 20100301
  5. ATORVASTATIN CALCIUM [Concomitant]
     Indication: CORONARY ARTERY DISEASE
     Dosage: 20 MG, DAILY (1/D)
     Route: 048
  6. CALCIMAGON-D3 [Concomitant]
     Indication: OSTEOPOROSIS
     Route: 048

REACTIONS (2)
  - HAEMORRHAGE [None]
  - VASCULAR PSEUDOANEURYSM RUPTURED [None]
